FAERS Safety Report 5137043-9 (Version None)
Quarter: 2006Q4

REPORT INFORMATION
  Report Type: 
  Country: None (occurrence: None)
  Receive Date: 20061024
  Receipt Date: 20061024
  Transmission Date: 20070319
  Serious: Yes (Hospitalization)
  Sender: FDA-Public Use
  Company Number: None

PATIENT
  Age: 44 Year
  Sex: Female

DRUGS (6)
  1. ANTABUSE [Suspect]
     Dates: start: 20050519, end: 20050607
  2. DISULFIRAM [Suspect]
  3. NEURONTIN [Concomitant]
  4. EFFEXOR [Concomitant]
  5. LAMICTAL [Concomitant]
  6. EXTRA STRENGTH TYLENOL [Concomitant]

REACTIONS (10)
  - ADVERSE DRUG REACTION [None]
  - HEPATIC TRAUMA [None]
  - HEPATITIS ACUTE [None]
  - HYPONATRAEMIA [None]
  - LEUKOPENIA [None]
  - MYALGIA [None]
  - RENAL FAILURE ACUTE [None]
  - RENAL TUBULAR NECROSIS [None]
  - THROMBOCYTOPENIA [None]
  - URINARY TRACT INFECTION [None]
